FAERS Safety Report 26037830 (Version 1)
Quarter: 2025Q4

REPORT INFORMATION
  Report Type: Spontaneous
  Country: US (occurrence: US)
  Receive Date: 20251112
  Receipt Date: 20251112
  Transmission Date: 20260117
  Serious: Yes (Other)
  Sender: BRACCO
  Company Number: US-BRACCO-2025US02305

PATIENT
  Sex: Male

DRUGS (32)
  1. LUMASON [Suspect]
     Active Substance: SULFUR HEXAFLUORIDE
     Indication: Echocardiogram
     Dosage: 1 ML, SINGLE
     Route: 042
     Dates: start: 20250407, end: 20250407
  2. LUMASON [Suspect]
     Active Substance: SULFUR HEXAFLUORIDE
     Indication: Echocardiogram
     Dosage: 1 ML, SINGLE
     Route: 042
     Dates: start: 20250407, end: 20250407
  3. LUMASON [Suspect]
     Active Substance: SULFUR HEXAFLUORIDE
     Indication: Echocardiogram
     Dosage: 1 ML, SINGLE
     Route: 042
     Dates: start: 20250407, end: 20250407
  4. AMIODARONE [Concomitant]
     Active Substance: AMIODARONE
  5. ANCEF [Concomitant]
     Active Substance: CEFAZOLIN SODIUM
  6. ASPIRIN [Concomitant]
     Active Substance: ASPIRIN
  7. ATIVAN [Concomitant]
     Active Substance: LORAZEPAM
  8. BRILINTA [Concomitant]
     Active Substance: TICAGRELOR
  9. CIPRO [Concomitant]
     Active Substance: CIPROFLOXACIN HYDROCHLORIDE
  10. ENTRESTO [Concomitant]
     Active Substance: SACUBITRIL\VALSARTAN
  11. HEPARIN [Concomitant]
     Active Substance: HEPARIN SODIUM
  12. HYDRALAZINE [Concomitant]
     Active Substance: HYDRALAZINE HYDROCHLORIDE
  13. HYDROCODONE [Concomitant]
     Active Substance: HYDROCODONE
  14. HYZAAR [Concomitant]
     Active Substance: HYDROCHLOROTHIAZIDE\LOSARTAN POTASSIUM
  15. INSULIN NOS [Concomitant]
     Active Substance: INSULIN NOS
  16. K-DUR [Concomitant]
     Active Substance: POTASSIUM CHLORIDE
  17. LASIX [Concomitant]
     Active Substance: FUROSEMIDE
  18. LIPITOR [Concomitant]
     Active Substance: ATORVASTATIN CALCIUM
  19. LOSARTAN [Concomitant]
     Active Substance: LOSARTAN
  20. LOVENOX [Concomitant]
     Active Substance: ENOXAPARIN SODIUM
  21. MARCAINE [Concomitant]
     Active Substance: BUPIVACAINE HYDROCHLORIDE
  22. METOPROLOL [Concomitant]
     Active Substance: METOPROLOL
  23. MEXILETINE HCL [Concomitant]
     Active Substance: MEXILETINE HYDROCHLORIDE
  24. MORPHINE SULFATE [Concomitant]
     Active Substance: MORPHINE SULFATE
  25. NITROGLYCERIN [Concomitant]
     Active Substance: NITROGLYCERIN
  26. ONDANSETRON [Concomitant]
     Active Substance: ONDANSETRON
  27. PANTOPRAZOLE [Concomitant]
     Active Substance: PANTOPRAZOLE
  28. PROPRANOLOL [Concomitant]
     Active Substance: PROPRANOLOL HYDROCHLORIDE
  29. RANEXA [Concomitant]
     Active Substance: RANOLAZINE
  30. SPIRONOLACTONE [Concomitant]
     Active Substance: SPIRONOLACTONE
  31. SUBLIMAZE [Concomitant]
     Active Substance: FENTANYL CITRATE
  32. VERSED [Concomitant]
     Active Substance: MIDAZOLAM HYDROCHLORIDE

REACTIONS (1)
  - Seizure [Recovered/Resolved]

NARRATIVE: CASE EVENT DATE: 20250407
